FAERS Safety Report 7292853-7 (Version None)
Quarter: 2011Q1

REPORT INFORMATION
  Report Type: 
  Country: None (occurrence: None)
  Receive Date: 20110215
  Receipt Date: 20110208
  Transmission Date: 20110831
  Serious: Yes (Death)
  Sender: FDA-Public Use
  Company Number: CN-BRACCO-000201

PATIENT
  Age: 43 Year
  Sex: Male

DRUGS (2)
  1. IOPAMIRO [Suspect]
     Indication: ANGIOGRAM
     Route: 042
     Dates: start: 20110208, end: 20110208
  2. IOPAMIRO [Suspect]
     Indication: CORONARY ARTERY DISEASE
     Route: 042
     Dates: start: 20110208, end: 20110208

REACTIONS (4)
  - ANAPHYLACTIC SHOCK [None]
  - SUDDEN CARDIAC DEATH [None]
  - CYANOSIS [None]
  - EPISTAXIS [None]
